FAERS Safety Report 16380232 (Version 1)
Quarter: 2019Q2

REPORT INFORMATION
  Report Type: Spontaneous
  Country: NL (occurrence: NL)
  Receive Date: 20190601
  Receipt Date: 20190601
  Transmission Date: 20190711
  Serious: Yes (Hospitalization, Other)
  Sender: FDA-Public Use
  Company Number: NL-AUROBINDO-AUR-APL-2019-030639

PATIENT

DRUGS (3)
  1. OXALIPLATIN. [Suspect]
     Active Substance: OXALIPLATIN
     Indication: COLORECTAL CANCER METASTATIC
     Dosage: UNK, MOST RECENT CYCLE (CYCLE 6) 15/JUL/2016
     Route: 065
  2. BEVACIZUMAB. [Suspect]
     Active Substance: BEVACIZUMAB
     Indication: COLORECTAL CANCER METASTATIC
     Dosage: UNK, MOST RECENT CYCLE (CYCLE 6) 15/JUL/2016
     Route: 065
  3. CAPECITABINE. [Suspect]
     Active Substance: CAPECITABINE
     Indication: COLORECTAL CANCER METASTATIC
     Dosage: UNK, MOST RECENT CYCLE (CYCLE 6) 15/JUL/2016
     Route: 065

REACTIONS (3)
  - Wound infection [Recovered/Resolved]
  - Rectal haemorrhage [Recovering/Resolving]
  - Abscess drainage [Recovered/Resolved]

NARRATIVE: CASE EVENT DATE: 20160926
